FAERS Safety Report 20964652 (Version 1)
Quarter: 2022Q2

REPORT INFORMATION
  Report Type: Report from Study
  Country: US (occurrence: US)
  Receive Date: 20220615
  Receipt Date: 20220615
  Transmission Date: 20220721
  Serious: Yes (Hospitalization, Other)
  Sender: FDA-Public Use
  Company Number: US-ABBVIE-22K-163-4432572-00

PATIENT
  Sex: Male

DRUGS (1)
  1. SKYRIZI [Suspect]
     Active Substance: RISANKIZUMAB-RZAA
     Indication: Psoriasis
     Route: 058

REACTIONS (6)
  - Bone neoplasm [Unknown]
  - Postoperative wound infection [Unknown]
  - Swelling [Unknown]
  - Incision site haemorrhage [Unknown]
  - Incision site discharge [Unknown]
  - Psoriasis [Unknown]

NARRATIVE: CASE EVENT DATE: 20220605
